FAERS Safety Report 5066056-0 (Version None)
Quarter: 2006Q3

REPORT INFORMATION
  Report Type: 
  Country: None (occurrence: None)
  Receive Date: 20060731
  Receipt Date: 20060731
  Transmission Date: 20061208
  Serious: Yes (Hospitalization)
  Sender: FDA-Public Use
  Company Number: None

PATIENT
  Age: 41 Year
  Sex: Female

DRUGS (13)
  1. FONDAPARINUX [Suspect]
     Indication: THROMBOSIS PROPHYLAXIS
     Dosage: 5 MG ONCE DAILY SQ
     Route: 058
     Dates: start: 20060317, end: 20060319
  2. METHADONE HCL [Concomitant]
  3. PERCOCET [Concomitant]
  4. SYNTHROID [Concomitant]
  5. ADVAIR DISKUS 100/50 [Concomitant]
  6. ALBUTEROL SPIROS [Concomitant]
  7. ATROVEN [Concomitant]
  8. FOLATE [Concomitant]
  9. MAGNESIUM OXIDE [Concomitant]
  10. PHENERGAN HCL [Concomitant]
  11. ZOFRAN [Concomitant]
  12. MULTI-VITAMIN [Concomitant]
  13. COLACE [Concomitant]

REACTIONS (2)
  - INCORRECT DOSE ADMINISTERED [None]
  - WOUND HAEMORRHAGE [None]
